FAERS Safety Report 7895644-9 (Version None)
Quarter: 2011Q4

REPORT INFORMATION
  Report Type: 
  Country: None (occurrence: None)
  Receive Date: 20111106
  Receipt Date: 20110830
  Transmission Date: 20120403
  Serious: No
  Sender: FDA-Public Use
  Company Number: US-AMGEN-USASP2011040203

PATIENT
  Age: 55 Year
  Sex: Female

DRUGS (4)
  1. METHOTREXATE [Suspect]
     Indication: ARTHROPATHY
     Dosage: 20 MG, QWK
     Route: 048
     Dates: start: 20090224
  2. PREDNISONE [Concomitant]
     Dosage: 8 MG, QD
  3. LEUCOVORIN CALCIUM [Concomitant]
     Dosage: UNK
  4. ENBREL [Suspect]
     Indication: MYALGIA
     Dosage: 50 MG, ONCE A WEEK
     Route: 058
     Dates: start: 20110408

REACTIONS (6)
  - JOINT STIFFNESS [None]
  - URETERAL DISORDER [None]
  - NASOPHARYNGITIS [None]
  - HYDRONEPHROSIS [None]
  - URINARY TRACT INFECTION [None]
  - SOFT TISSUE MASS [None]
